FAERS Safety Report 7930302-3 (Version None)
Quarter: 2011Q4

REPORT INFORMATION
  Report Type: 
  Country: None (occurrence: None)
  Receive Date: 20111121
  Receipt Date: 20111110
  Transmission Date: 20120403
  Serious: Yes (Other)
  Sender: FDA-Public Use
  Company Number: US-JNJFOC-20111105603

PATIENT
  Sex: Female

DRUGS (1)
  1. LISTERINE TOOTH DEFENSE [Suspect]
     Indication: DENTAL DISORDER PROPHYLAXIS
     Dosage: ^NOT VERY MUCH^ ONCE
     Route: 048
     Dates: start: 20111109

REACTIONS (2)
  - TONGUE HAEMORRHAGE [None]
  - APPLICATION SITE BURN [None]
